FAERS Safety Report 15789654 (Version 1)
Quarter: 2018Q4

REPORT INFORMATION
  Report Type: Spontaneous
  Country: US (occurrence: US)
  Receive Date: 20181213
  Receipt Date: 20181213
  Transmission Date: 20190205
  Serious: Yes (Hospitalization)
  Sender: FDA-Public Use
  Company Number: None

PATIENT
  Age: 61 Year
  Sex: Male
  Weight: 98 kg

DRUGS (2)
  1. LURASIDONE [Suspect]
     Active Substance: LURASIDONE
     Indication: BIPOLAR I DISORDER
     Dosage: ?          OTHER FREQUENCY:PM;?
     Route: 048
     Dates: start: 20180712, end: 20180926
  2. LURASIDONE [Suspect]
     Active Substance: LURASIDONE
     Indication: SCHIZOAFFECTIVE DISORDER
     Dosage: ?          OTHER FREQUENCY:PM;?
     Route: 048
     Dates: start: 20180712, end: 20180926

REACTIONS (8)
  - Agitation [None]
  - Akathisia [None]
  - Anxiety [None]
  - Suicidal ideation [None]
  - Discomfort [None]
  - Impulse-control disorder [None]
  - Intentional dose omission [None]
  - Restlessness [None]

NARRATIVE: CASE EVENT DATE: 20180926
